FAERS Safety Report 7545351-7 (Version None)
Quarter: 2011Q2

REPORT INFORMATION
  Report Type: 
  Country: None (occurrence: None)
  Receive Date: 20110614
  Receipt Date: 20110518
  Transmission Date: 20111010
  Serious: Yes (Other)
  Sender: FDA-Public Use
  Company Number: DE-AMGEN-DEUSP2011025669

PATIENT

DRUGS (5)
  1. NEBIVOLOL HCL [Concomitant]
  2. LISINOPRIL [Concomitant]
  3. OXYGESIC [Concomitant]
  4. ZOCOR [Concomitant]
  5. NPLATE [Suspect]
     Indication: PRODUCT USED FOR UNKNOWN INDICATION
     Dosage: UNK UNK, QWK
     Route: 058
     Dates: start: 20110204, end: 20110318

REACTIONS (4)
  - FATIGUE [None]
  - INFLUENZA [None]
  - PAIN IN EXTREMITY [None]
  - BONE PAIN [None]
